FAERS Safety Report 9961158 (Version 1)
Quarter: 2014Q1

REPORT INFORMATION
  Report Type: Spontaneous
  Country: US (occurrence: None)
  Receive Date: 20140304
  Receipt Date: 20140304
  Transmission Date: 20141002
  Serious: Yes (Hospitalization)
  Sender: FDA-Public Use
  Company Number: None

PATIENT
  Age: 61 Year
  Sex: Female
  Weight: 62.34 kg

DRUGS (17)
  1. 5-FU [Suspect]
     Indication: PANCREATIC CARCINOMA
  2. IRINOTECAN [Suspect]
     Indication: PANCREATIC CARCINOMA
     Route: 048
  3. OXALIPLATIN [Suspect]
  4. LEUCOVORIN [Suspect]
  5. ACETAMINOPHEN [Concomitant]
  6. ALEVE [Concomitant]
  7. CYCLOBENZAPRINE [Concomitant]
  8. DEXAMETHASONE [Concomitant]
  9. DULCOLAX [Concomitant]
  10. EXCEDRIN [Concomitant]
  11. IMITREX [Concomitant]
  12. LIDOCAINE-PRILOCAINE [Concomitant]
  13. OMEPRAZOLE [Concomitant]
  14. ONDANSETRON [Concomitant]
  15. PROCHLORPERAZINE [Concomitant]
  16. SENNA [Concomitant]
  17. SIMVASTATIN [Concomitant]

REACTIONS (4)
  - Nausea [None]
  - Vomiting [None]
  - Faeces soft [None]
  - Dehydration [None]
